FAERS Safety Report 20733052 (Version 1)
Quarter: 2022Q2

REPORT INFORMATION
  Report Type: Spontaneous
  Country: US (occurrence: US)
  Receive Date: 20220421
  Receipt Date: 20220421
  Transmission Date: 20220721
  Serious: No
  Sender: FDA-Public Use
  Company Number: US-drreddys-SPO/USA/22/0148926

PATIENT
  Age: 15 Year

DRUGS (1)
  1. ZENATANE [Suspect]
     Active Substance: ISOTRETINOIN
     Indication: Product used for unknown indication
     Dosage: RMA ISSUE DATE: 1 MARCH 2022 08:06:44 PM, 7 JANUARY 2022 05:25:01 PM, 3 DECEMBER 2021 06:18:17 PM, 2

REACTIONS (2)
  - Product dose omission issue [Unknown]
  - Product administration interrupted [Unknown]
